FAERS Safety Report 13436348 (Version 1)
Quarter: 2017Q2

REPORT INFORMATION
  Report Type: Spontaneous
  Country: US (occurrence: US)
  Receive Date: 20170412
  Receipt Date: 20170412
  Transmission Date: 20170830
  Serious: Yes (Other)
  Sender: FDA-Public Use
  Company Number: None

PATIENT
  Age: 53 Year
  Sex: Male
  Weight: 86.64 kg

DRUGS (20)
  1. AMLODIPINE [Concomitant]
     Active Substance: AMLODIPINE BESYLATE
  2. CYANOCOBALAMIN. [Concomitant]
     Active Substance: CYANOCOBALAMIN
  3. NYSTATIN. [Concomitant]
     Active Substance: NYSTATIN
  4. DIPHENHYDRAMINE. [Concomitant]
     Active Substance: DIPHENHYDRAMINE
  5. FLUCONAZOLE. [Concomitant]
     Active Substance: FLUCONAZOLE
  6. LIDOCAINE PATCH [Concomitant]
     Active Substance: LIDOCAINE
  7. ONDANSETRON [Concomitant]
     Active Substance: ONDANSETRON
  8. SPIRONOLACTONE. [Concomitant]
     Active Substance: SPIRONOLACTONE
  9. HYDROCODONE-ACETAMINOPHEN [Concomitant]
     Active Substance: ACETAMINOPHEN\HYDROCODONE
  10. OMEPRAZOLE. [Concomitant]
     Active Substance: OMEPRAZOLE
  11. TRAMADOL. [Concomitant]
     Active Substance: TRAMADOL
  12. COUMADIN [Concomitant]
     Active Substance: WARFARIN SODIUM
  13. LYRICA [Concomitant]
     Active Substance: PREGABALIN
  14. MUPIROCIN. [Concomitant]
     Active Substance: MUPIROCIN
  15. ALBUTEROL. [Concomitant]
     Active Substance: ALBUTEROL
  16. LIDOCAINE 5% EXTERNAL PATCH [Suspect]
     Active Substance: LIDOCAINE
     Indication: PAIN
     Dosage: QUANITY - # 30 PATCHES?ROUTE - APPLY TO SKIN?FREQUENCY - 1 PATCH Q 24 HRS
  17. TIZANIDINE. [Concomitant]
     Active Substance: TIZANIDINE
  18. LIDOCAINE CREAM [Concomitant]
  19. NICOTINE TRANSDERMAL SYSTEM [Concomitant]
     Active Substance: NICOTINE
  20. EPIPEN [Concomitant]
     Active Substance: EPINEPHRINE

REACTIONS (3)
  - Skin ulcer [None]
  - Medical device site reaction [None]
  - Dermatitis infected [None]
